FAERS Safety Report 25941244 (Version 1)
Quarter: 2025Q4

REPORT INFORMATION
  Report Type: Spontaneous
  Country: US (occurrence: None)
  Receive Date: 20251019
  Receipt Date: 20251019
  Transmission Date: 20260118
  Serious: No
  Sender: FDA-CTU
  Company Number: None

PATIENT
  Age: 71 Year
  Sex: Female
  Weight: 60.75 kg

DRUGS (6)
  1. COSMETICS [Suspect]
     Active Substance: COSMETICS
     Indication: Skin cosmetic procedure
     Route: 061
     Dates: start: 20251019, end: 20251019
  2. FAMOTIDINE [Concomitant]
     Active Substance: FAMOTIDINE
  3. LEVOTHYROXINE [Concomitant]
     Active Substance: LEVOTHYROXINE
  4. VITAMIN D [Concomitant]
     Active Substance: VITAMIN D NOS
  5. Omega 6 [Concomitant]
  6. BIOTIN [Concomitant]
     Active Substance: BIOTIN

REACTIONS (3)
  - Sinus disorder [None]
  - Drug hypersensitivity [None]
  - Eye irritation [None]

NARRATIVE: CASE EVENT DATE: 20251019
